FAERS Safety Report 5049483-7 (Version None)
Quarter: 2006Q3

REPORT INFORMATION
  Report Type: 
  Country: None (occurrence: None)
  Receive Date: 20060712
  Receipt Date: 20060706
  Transmission Date: 20061208
  Serious: Yes (Death, Hospitalization)
  Sender: FDA-Public Use
  Company Number: 2006AC01268

PATIENT
  Sex: Male

DRUGS (12)
  1. PROPOFOL [Suspect]
     Dosage: 1%
     Route: 042
     Dates: start: 20060515, end: 20060517
  2. RTFPI CODE NOT BROKEN [Concomitant]
     Indication: PNEUMONIA
     Dates: start: 20060512, end: 20060516
  3. HYDROCORTISONE [Concomitant]
     Dates: start: 20060512
  4. MIDAZOLAM [Concomitant]
     Dates: start: 20060512
  5. MORPHINE [Concomitant]
     Dates: start: 20060512
  6. NORADRENALINE [Concomitant]
     Dates: start: 20060512
  7. INSULIN [Concomitant]
     Dates: start: 20060513
  8. RANITIDINE [Concomitant]
     Dates: start: 20060512
  9. CLEXANE [Concomitant]
     Dates: start: 20060519
  10. RIFAMPICIN [Concomitant]
     Dates: start: 20060517
  11. CEFTRIAXONE [Concomitant]
     Dates: start: 20060512
  12. LEVOFLOXACIN [Concomitant]
     Dates: start: 20060512

REACTIONS (4)
  - HYPERKALAEMIA [None]
  - PYREXIA [None]
  - RENAL FAILURE ACUTE [None]
  - RHABDOMYOLYSIS [None]
